FAERS Safety Report 8160151-5 (Version None)
Quarter: 2012Q1

REPORT INFORMATION
  Report Type: 
  Country: None (occurrence: None)
  Receive Date: 20120223
  Receipt Date: 20120217
  Transmission Date: 20120608
  Serious: Yes (Death)
  Sender: FDA-Public Use
  Company Number: US-ELI_LILLY_AND_COMPANY-US201111005351

PATIENT
  Sex: Female

DRUGS (2)
  1. PLAVIX [Concomitant]
     Dosage: 600 MG, UNK
  2. EFFIENT [Suspect]
     Indication: STENT PLACEMENT
     Dosage: 60 MG, LOADING DOSE

REACTIONS (1)
  - HAEMORRHAGE INTRACRANIAL [None]
